FAERS Safety Report 6335938-1 (Version None)
Quarter: 2009Q3

REPORT INFORMATION
  Report Type: 
  Country: None (occurrence: None)
  Receive Date: 20090901
  Receipt Date: 20070521
  Transmission Date: 20100115
  Serious: Yes (Other)
  Sender: FDA-Public Use
  Company Number: US-ASTRAZENECA-2006UW25221

PATIENT
  Age: 11707 Day
  Sex: Female
  Weight: 82.1 kg

DRUGS (19)
  1. SEROQUEL [Suspect]
     Indication: DEPRESSION
     Route: 048
     Dates: start: 19970101, end: 20051115
  2. SEROQUEL [Suspect]
     Indication: BIPOLAR DISORDER
     Route: 048
     Dates: start: 19970101, end: 20051115
  3. SEROQUEL [Suspect]
     Indication: SCHIZOPHRENIA
     Route: 048
     Dates: start: 19970101, end: 20051115
  4. SEROQUEL [Suspect]
     Route: 048
     Dates: start: 20050101
  5. SEROQUEL [Suspect]
     Route: 048
     Dates: start: 20050101
  6. SEROQUEL [Suspect]
     Route: 048
     Dates: start: 20050101
  7. SEROQUEL [Suspect]
     Route: 048
     Dates: start: 20051020, end: 20051115
  8. SEROQUEL [Suspect]
     Route: 048
     Dates: start: 20051020, end: 20051115
  9. SEROQUEL [Suspect]
     Route: 048
     Dates: start: 20051020, end: 20051115
  10. ABILIFY [Concomitant]
  11. HALDOL [Concomitant]
  12. RISPERDAL [Concomitant]
     Dosage: 2MG-5MG
     Dates: start: 20000825
  13. PROZAC [Concomitant]
     Indication: DEPRESSIVE SYMPTOM
     Dates: end: 20030429
  14. PROZAC [Concomitant]
     Dosage: 20-60MG
     Dates: start: 20000825
  15. COGENTIN [Concomitant]
     Dates: end: 20030429
  16. COGENTIN [Concomitant]
     Dosage: 1-4MG
     Dates: start: 20000825
  17. TRAZODONE HCL [Concomitant]
     Dates: end: 20030429
  18. TRAZODONE HCL [Concomitant]
     Dates: start: 20000825
  19. DEPAKOTE [Concomitant]
     Indication: AFFECTIVE DISORDER
     Dosage: 250-750MG
     Dates: start: 20000719

REACTIONS (3)
  - DIABETES MELLITUS [None]
  - DIABETIC NEUROPATHY [None]
  - TYPE 2 DIABETES MELLITUS [None]
